FAERS Safety Report 4291224-5 (Version None)
Quarter: 2004Q1

REPORT INFORMATION
  Report Type: 
  Country: None (occurrence: None)
  Receive Date: 20040211
  Receipt Date: 20031117
  Transmission Date: 20041129
  Serious: No
  Sender: FDA-Public Use
  Company Number: US-GLAXOSMITHKLINE-A0439896A

PATIENT
  Age: 55 Year
  Sex: Female
  Weight: 69.1 kg

DRUGS (2)
  1. PAXIL [Suspect]
     Route: 048
  2. AMBIEN [Suspect]
     Route: 065

REACTIONS (4)
  - ANXIETY [None]
  - HOT FLUSH [None]
  - HYPERHIDROSIS [None]
  - INSOMNIA [None]
